FAERS Safety Report 14575750 (Version 3)
Quarter: 2019Q3

REPORT INFORMATION
  Report Type: Spontaneous
  Country: JP (occurrence: JP)
  Receive Date: 20180227
  Receipt Date: 20190718
  Transmission Date: 20191004
  Serious: Yes (Hospitalization)
  Sender: FDA-Public Use
  Company Number: PHJP2018JP004120

PATIENT

DRUGS (2)
  1. MEKINIST [Suspect]
     Active Substance: TRAMETINIB DIMETHYL SULFOXIDE
     Indication: MALIGNANT MELANOMA
     Dosage: 2 MG, UNK
     Route: 048
     Dates: start: 201801, end: 201802
  2. TAFINLAR [Suspect]
     Active Substance: DABRAFENIB MESYLATE
     Indication: MALIGNANT MELANOMA
     Dosage: 300 MG, UNK
     Route: 048
     Dates: start: 201801, end: 201802

REACTIONS (5)
  - Platelet count decreased [Not Recovered/Not Resolved]
  - Disseminated intravascular coagulation [Not Recovered/Not Resolved]
  - Thrombosis [Unknown]
  - Blood creatine phosphokinase increased [Not Recovered/Not Resolved]
  - Thirst [Recovering/Resolving]

NARRATIVE: CASE EVENT DATE: 201802
